FAERS Safety Report 9448000 (Version 1)
Quarter: 2013Q3

REPORT INFORMATION
  Report Type: Spontaneous
  Country: US (occurrence: US)
  Receive Date: 20130808
  Receipt Date: 20130808
  Transmission Date: 20140515
  Serious: Yes (Hospitalization)
  Sender: FDA-Public Use
  Company Number: US-PERRIGO-13US007997

PATIENT
  Age: 17 Year
  Sex: Female
  Weight: 73 kg

DRUGS (2)
  1. NAPROXEN RX 250 MG 121 [Suspect]
     Indication: DYSMENORRHOEA
     Dosage: 250 MG, QID
     Route: 048
  2. NAPROXEN RX 250 MG 121 [Suspect]
     Dosage: PRN FOR A YEAR

REACTIONS (7)
  - Renal papillary necrosis [Recovered/Resolved]
  - Renal failure acute [Recovered/Resolved]
  - Nephropathy toxic [Recovered/Resolved]
  - Tubulointerstitial nephritis [Recovered/Resolved]
  - Renal tubular necrosis [Recovered/Resolved]
  - Abdominal tenderness [Recovered/Resolved]
  - Abdominal pain [Recovered/Resolved]
